FAERS Safety Report 6749392-9 (Version None)
Quarter: 2010Q2

REPORT INFORMATION
  Report Type: 
  Country: None (occurrence: None)
  Receive Date: 20100601
  Receipt Date: 20100521
  Transmission Date: 20101027
  Serious: Yes (Other)
  Sender: FDA-Public Use
  Company Number: US-ROCHE-704601

PATIENT
  Sex: Female

DRUGS (1)
  1. BONIVA [Suspect]
     Indication: DRUG USE FOR UNKNOWN INDICATION
     Route: 065
     Dates: start: 20100504

REACTIONS (4)
  - DIARRHOEA [None]
  - DYSPEPSIA [None]
  - GASTRIC DISORDER [None]
  - GASTROINTESTINAL PERFORATION [None]
